FAERS Safety Report 11430422 (Version 1)
Quarter: 2015Q3

REPORT INFORMATION
  Report Type: Spontaneous
  Country: US (occurrence: US)
  Receive Date: 20150828
  Receipt Date: 20150828
  Transmission Date: 20151125
  Serious: No
  Sender: FDA-Public Use
  Company Number: US-ROCHE-1199085

PATIENT
  Sex: Female

DRUGS (4)
  1. RIBASPHERE [Suspect]
     Active Substance: RIBAVIRIN
     Route: 048
  2. INCIVEK [Suspect]
     Active Substance: TELAPREVIR
     Indication: CHRONIC HEPATITIS C
     Dosage: 9AM,4PM,11PM,  THERAPY COMPLETED
     Route: 065
     Dates: start: 20130221
  3. PEGASYS [Suspect]
     Active Substance: PEGINTERFERON ALFA-2A
     Indication: CHRONIC HEPATITIS C
     Route: 058
     Dates: start: 20130221
  4. RIBASPHERE [Suspect]
     Active Substance: RIBAVIRIN
     Indication: CHRONIC HEPATITIS C
     Route: 048
     Dates: start: 20130221

REACTIONS (8)
  - Fatigue [Unknown]
  - Decreased appetite [Unknown]
  - Dysgeusia [Unknown]
  - Oral pain [Recovered/Resolved]
  - Breath odour [Unknown]
  - Blood disorder [Unknown]
  - Vertigo [Unknown]
  - Somnolence [Unknown]
